FAERS Safety Report 9193007 (Version 1)
Quarter: 2013Q1

REPORT INFORMATION
  Report Type: Spontaneous
  Country: BR (occurrence: BR)
  Receive Date: 20130327
  Receipt Date: 20130327
  Transmission Date: 20140127
  Serious: Yes (Other)
  Sender: FDA-Public Use
  Company Number: BR-PFIZER INC-2013097637

PATIENT
  Age: 73 Year
  Sex: Female

DRUGS (3)
  1. ALDACTONE [Suspect]
     Dosage: 25 MG, UNK
     Route: 048
  2. SIRDALUD [Concomitant]
  3. DIOVAN [Concomitant]
     Indication: BLOOD PRESSURE INCREASED

REACTIONS (5)
  - Breast cancer [Unknown]
  - Spinal pain [Not Recovered/Not Resolved]
  - Pain in extremity [Not Recovered/Not Resolved]
  - Prosthesis user [Not Recovered/Not Resolved]
  - Malaise [Not Recovered/Not Resolved]
